FAERS Safety Report 16657221 (Version 2)
Quarter: 2019Q3

REPORT INFORMATION
  Report Type: Report from Study
  Country: None (occurrence: US)
  Receive Date: 20190801
  Receipt Date: 20190805
  Transmission Date: 20191004
  Serious: Yes (Other)
  Sender: FDA-Public Use
  Company Number: US-ABBVIE-19K-163-2871041-00

PATIENT
  Age: 72 Year
  Sex: Female

DRUGS (3)
  1. CREON [Suspect]
     Active Substance: PANCRELIPASE AMYLASE\PANCRELIPASE LIPASE\PANCRELIPASE PROTEASE
     Indication: PANCREATIC FAILURE
     Dosage: WITH MEALS 1 CAPSULE WITH SNACK SWALLOW WHOLE NOT TO CRUSH AND OR DIVIDE
     Route: 048
     Dates: start: 2002, end: 20190729
  2. CREON [Suspect]
     Active Substance: PANCRELIPASE AMYLASE\PANCRELIPASE LIPASE\PANCRELIPASE PROTEASE
     Dosage: TWO CAPSULES, THREE TIMES A DAY WITH MEALS AND ONE CAPSULE WITH SNACK
     Route: 048
     Dates: start: 2019
  3. ZENPEP [Concomitant]
     Active Substance: PANCRELIPASE AMYLASE\PANCRELIPASE LIPASE\PANCRELIPASE PROTEASE
     Indication: PRODUCT USED FOR UNKNOWN INDICATION
     Route: 048

REACTIONS (9)
  - Confusional state [Unknown]
  - Diarrhoea [Unknown]
  - Pancreatic failure [Unknown]
  - Pancreatitis chronic [Unknown]
  - Nausea [Unknown]
  - Constipation [Unknown]
  - Gastric operation [Unknown]
  - Diarrhoea [Recovered/Resolved]
  - Vomiting [Unknown]

NARRATIVE: CASE EVENT DATE: 20120711
